FAERS Safety Report 14641591 (Version 1)
Quarter: 2018Q1

REPORT INFORMATION
  Report Type: Spontaneous
  Country: US (occurrence: US)
  Receive Date: 20180315
  Receipt Date: 20180315
  Transmission Date: 20180509
  Serious: Yes (Other)
  Sender: FDA-Public Use
  Company Number: US-MYLANLABS-2018M1015665

PATIENT
  Age: 55 Year
  Sex: Female

DRUGS (6)
  1. URSODEOXYCHOLIC ACID [Suspect]
     Active Substance: URSODIOL
     Indication: CHOLANGITIS
     Dosage: INITIALLY, 15 MG/KG/DAY
     Route: 065
     Dates: start: 201204
  2. URSODEOXYCHOLIC ACID [Suspect]
     Active Substance: URSODIOL
     Dosage: TITRATED UP TO 23 MG/KG/DAY
     Route: 065
  3. CALCIUM [Interacting]
     Active Substance: CALCIUM
     Indication: PRODUCT USED FOR UNKNOWN INDICATION
     Dosage: 1000 MG TABLETS DAILY
     Route: 065
  4. URSODEOXYCHOLIC ACID [Suspect]
     Active Substance: URSODIOL
     Dosage: 1500 MG/DAY
     Route: 065
  5. LEVOTHYROXINE. [Suspect]
     Active Substance: LEVOTHYROXINE
     Indication: PRODUCT USED FOR UNKNOWN INDICATION
     Dosage: 88 MG
     Route: 065
  6. OBETICHOLIC ACID [Interacting]
     Active Substance: OBETICHOLIC ACID
     Indication: CHOLANGITIS
     Dosage: 5 MG DAILY
     Route: 065
     Dates: start: 20160801

REACTIONS (4)
  - Withdrawal syndrome [Recovering/Resolving]
  - Drug interaction [Recovering/Resolving]
  - Hepatitis cholestatic [Recovering/Resolving]
  - Jaundice [Recovering/Resolving]

NARRATIVE: CASE EVENT DATE: 2016
